FAERS Safety Report 5203748-4 (Version None)
Quarter: 2007Q1

REPORT INFORMATION
  Report Type: 
  Country: None (occurrence: None)
  Receive Date: 20070108
  Receipt Date: 20070108
  Transmission Date: 20070707
  Serious: Yes (Death)
  Sender: FDA-Public Use
  Company Number: None

PATIENT
  Age: 39 Year
  Sex: Male
  Weight: 81.6475 kg

DRUGS (2)
  1. METHADONE HCL [Suspect]
     Indication: DEPENDENCE
     Dosage: 160MG DAILY
     Dates: start: 20051111, end: 20051112
  2. XANAX [Suspect]
     Dosage: 2MG DAILY

REACTIONS (1)
  - LOSS OF CONSCIOUSNESS [None]
